FAERS Safety Report 4978306-7 (Version None)
Quarter: 2006Q2

REPORT INFORMATION
  Report Type: 
  Country: None (occurrence: None)
  Receive Date: 20060417
  Receipt Date: 20060401
  Transmission Date: 20061013
  Serious: Yes (Other)
  Sender: FDA-Public Use
  Company Number: 2005SP004269

PATIENT
  Age: 39 Year
  Sex: Male
  Weight: 64.4108 kg

DRUGS (4)
  1. LUNESTA [Suspect]
     Indication: INSOMNIA
     Dosage: SEE IMAGE
     Route: 048
     Dates: start: 20051201
  2. PAXIL [Suspect]
     Dates: start: 20051201
  3. AMBIEN [Concomitant]
  4. NEXIUM [Concomitant]

REACTIONS (3)
  - HALLUCINATION, AUDITORY [None]
  - LUNG ADENOCARCINOMA [None]
  - MIDDLE INSOMNIA [None]
